FAERS Safety Report 4840743-9 (Version None)
Quarter: 2005Q4

REPORT INFORMATION
  Report Type: 
  Country: None (occurrence: None)
  Receive Date: 20051027
  Receipt Date: 20050314
  Transmission Date: 20060501
  Serious: Yes (Other)
  Sender: FDA-Public Use
  Company Number: HQWYE204416JUL04

PATIENT
  Age: 49 Year
  Sex: Female
  Weight: 77.18 kg

DRUGS (1)
  1. PREMARIN [Suspect]
     Indication: NIGHT SWEATS
     Dosage: 0.625 MG, ORAL
     Route: 048
     Dates: start: 19980101, end: 20020101

REACTIONS (2)
  - OVARIAN CANCER [None]
  - UTERINE CANCER [None]
